FAERS Safety Report 4378199-5 (Version None)
Quarter: 2004Q2

REPORT INFORMATION
  Report Type: 
  Country: None (occurrence: None)
  Receive Date: 20040609
  Receipt Date: 20040520
  Transmission Date: 20050107
  Serious: Yes (Other)
  Sender: FDA-Public Use
  Company Number: US_0405103247

PATIENT
  Age: 82 Year
  Sex: Female

DRUGS (2)
  1. EVISTA [Suspect]
  2. MIACALCIN [Concomitant]

REACTIONS (3)
  - BONE DENSITY DECREASED [None]
  - COMPRESSION FRACTURE [None]
  - DRUG INEFFECTIVE [None]
